FAERS Safety Report 10332601 (Version 1)
Quarter: 2014Q3

REPORT INFORMATION
  Report Type: Spontaneous
  Country: JP (occurrence: JP)
  Receive Date: 20140722
  Receipt Date: 20140722
  Transmission Date: 20150326
  Serious: Yes (Other)
  Sender: FDA-Public Use
  Company Number: JP-GLAXOSMITHKLINE-B1011004A

PATIENT
  Age: 66 Year
  Sex: Male

DRUGS (4)
  1. HEPSERA [Suspect]
     Active Substance: ADEFOVIR DIPIVOXIL
     Route: 048
  2. HEPSERA [Suspect]
     Active Substance: ADEFOVIR DIPIVOXIL
     Route: 048
  3. ZEFIX [Suspect]
     Active Substance: LAMIVUDINE
     Indication: PRODUCT USED FOR UNKNOWN INDICATION
     Route: 048
  4. HEPSERA [Suspect]
     Active Substance: ADEFOVIR DIPIVOXIL
     Route: 048

REACTIONS (13)
  - Pain in extremity [Unknown]
  - Arthralgia [Unknown]
  - Osteonecrosis [Unknown]
  - Hepatitis B DNA increased [Unknown]
  - Renal tubular disorder [Unknown]
  - Pathological fracture [Unknown]
  - Blood creatinine increased [Unknown]
  - Hypophosphataemia [Unknown]
  - Osteomalacia [Unknown]
  - Renal disorder [Unknown]
  - Fanconi syndrome [Unknown]
  - Renal impairment [Unknown]
  - Foot fracture [Unknown]
